FAERS Safety Report 6935899-8 (Version None)
Quarter: 2010Q3

REPORT INFORMATION
  Report Type: 
  Country: None (occurrence: None)
  Receive Date: 20100816
  Receipt Date: 20100512
  Transmission Date: 20110219
  Serious: Yes (Other)
  Sender: FDA-Public Use
  Company Number: US-WYE-H15073710

PATIENT

DRUGS (1)
  1. TYGACIL [Suspect]
     Indication: OSTEOMYELITIS

REACTIONS (1)
  - CONFUSIONAL STATE [None]
